FAERS Safety Report 9760767 (Version 3)
Quarter: 2015Q4

REPORT INFORMATION
  Report Type: Spontaneous
  Country: FR (occurrence: FR)
  Receive Date: 20131216
  Receipt Date: 20151103
  Transmission Date: 20160305
  Serious: Yes (Hospitalization, Other)
  Sender: FDA-Public Use
  Company Number: FR-BRISTOL-MYERS SQUIBB COMPANY-19888452

PATIENT
  Age: 35 Year
  Sex: Female
  Weight: 80 kg

DRUGS (6)
  1. NORVIR [Suspect]
     Active Substance: RITONAVIR
     Indication: HIV INFECTION
     Dosage: 100 MG, QD
     Route: 048
  2. TRUVADA [Suspect]
     Active Substance: EMTRICITABINE\TENOFOVIR DISOPROXIL FUMARATE
     Indication: HIV INFECTION
     Dosage: UNK
     Route: 048
     Dates: start: 2011, end: 20131108
  3. COMBIVIR [Suspect]
     Active Substance: LAMIVUDINE\ZIDOVUDINE
     Indication: HIV INFECTION
     Dosage: 1 TAB, BID
     Route: 048
     Dates: start: 20131108
  4. URSOLVAN [Suspect]
     Active Substance: URSODIOL
     Indication: PRURITUS
     Dosage: 1 DF=2 TABS
     Route: 048
     Dates: start: 20131018, end: 20131107
  5. REYATAZ [Suspect]
     Active Substance: ATAZANAVIR SULFATE
     Indication: HIV INFECTION
     Dosage: 300 MG, QD
     Route: 048
     Dates: end: 20131108
  6. PREZISTA [Suspect]
     Active Substance: DARUNAVIR ETHANOLATE
     Indication: HIV INFECTION
     Dosage: 800 MG, QD
     Route: 048
     Dates: start: 20131108

REACTIONS (10)
  - Tachypnoea [Recovered/Resolved]
  - Premature delivery [Unknown]
  - Maternal exposure during pregnancy [Recovered/Resolved]
  - Overdose [Unknown]
  - Live birth [Unknown]
  - Renal failure [Recovered/Resolved]
  - General physical health deterioration [Recovered/Resolved]
  - Hepatocellular injury [Recovered/Resolved]
  - Caesarean section [Unknown]
  - Pruritus generalised [Recovered/Resolved]
